FAERS Safety Report 16715671 (Version 1)
Quarter: 2019Q3

REPORT INFORMATION
  Report Type: Spontaneous
  Country: US (occurrence: US)
  Receive Date: 20190819
  Receipt Date: 20190819
  Transmission Date: 20191005
  Serious: No
  Sender: FDA-Public Use
  Company Number: US-HORIZON-VIM-0313-2019

PATIENT
  Age: 61 Year
  Sex: Female

DRUGS (3)
  1. LEVOTHYROXINE. [Concomitant]
     Active Substance: LEVOTHYROXINE
  2. MUCINEX [Concomitant]
     Active Substance: GUAIFENESIN
  3. VIMOVO [Suspect]
     Active Substance: ESOMEPRAZOLE MAGNESIUM\NAPROXEN
     Indication: ARTHRALGIA
     Dosage: 1 TAB BID WITH FOOD
     Route: 048
     Dates: start: 201902

REACTIONS (2)
  - Therapeutic response decreased [Unknown]
  - Product administration error [Unknown]

NARRATIVE: CASE EVENT DATE: 201902
